FAERS Safety Report 5794775-7 (Version None)
Quarter: 2008Q2

REPORT INFORMATION
  Report Type: 
  Country: None (occurrence: None)
  Receive Date: 20080627
  Receipt Date: 20080627
  Transmission Date: 20081010
  Serious: Yes (Hospitalization)
  Sender: FDA-Public Use
  Company Number: None

PATIENT
  Age: 60 Year
  Sex: Female
  Weight: 54.4316 kg

DRUGS (16)
  1. ERBITUX [Suspect]
     Indication: LUNG CARCINOMA CELL TYPE UNSPECIFIED STAGE IV
     Dosage: 200 MG/M2
     Dates: start: 20070409, end: 20070701
  2. TARCEVA [Suspect]
     Indication: LUNG CARCINOMA CELL TYPE UNSPECIFIED STAGE IV
     Dosage: 100 MG
     Dates: start: 20070409, end: 20070701
  3. NORVASC [Concomitant]
  4. NEXIUM [Concomitant]
  5. LEVEMIR [Concomitant]
  6. NOVOLOG [Concomitant]
  7. ALTACE [Concomitant]
  8. FOSAMAX [Concomitant]
  9. VICODIN [Concomitant]
  10. HYDROCORTISONE [Concomitant]
  11. CORTEF [Concomitant]
  12. BUSPIRONE HCL [Concomitant]
  13. ALBUTEROL [Concomitant]
  14. TARCEVA/CETUXIMAB [Concomitant]
  15. CYCLOSPORINE [Concomitant]
  16. MAGNESIUM [Concomitant]

REACTIONS (3)
  - BRONCHOPNEUMONIA [None]
  - CONDITION AGGRAVATED [None]
  - LUNG DISORDER [None]
